FAERS Safety Report 11174021 (Version 1)
Quarter: 2015Q2

REPORT INFORMATION
  Report Type: Spontaneous
  Country: CA (occurrence: CA)
  Receive Date: 20150609
  Receipt Date: 20150609
  Transmission Date: 20150821
  Serious: Yes (Hospitalization)
  Sender: FDA-Public Use
  Company Number: CA-ROCHE-1591077

PATIENT
  Age: 55 Year
  Sex: Female

DRUGS (4)
  1. XOLAIR [Suspect]
     Active Substance: OMALIZUMAB
     Indication: ASTHMA
     Route: 058
     Dates: start: 20141126
  2. VENTOLIN [Concomitant]
     Active Substance: ALBUTEROL SULFATE
  3. PREDNISONE ^DAK^ [Concomitant]
  4. SYMBICORT [Concomitant]
     Active Substance: BUDESONIDE\FORMOTEROL FUMARATE DIHYDRATE

REACTIONS (6)
  - Headache [Recovering/Resolving]
  - Hypophagia [Unknown]
  - Cough [Unknown]
  - Throat irritation [Recovering/Resolving]
  - Tongue disorder [Unknown]
  - Bronchopulmonary aspergillosis [Unknown]

NARRATIVE: CASE EVENT DATE: 20141127
